FAERS Safety Report 5206746-X (Version None)
Quarter: 2006Q4

REPORT INFORMATION
  Report Type: 
  Country: None (occurrence: None)
  Receive Date: 20061030
  Receipt Date: 20060920
  Transmission Date: 20070319
  Serious: No
  Sender: FDA-Public Use
  Company Number: 257201

PATIENT
  Age: 55 Year
  Sex: Female

DRUGS (1)
  1. LEVEMIR [Suspect]
     Indication: INSULIN-REQUIRING TYPE II DIABETES MELLITUS
     Dosage: SUBCUTANEOUS
     Route: 058
     Dates: start: 20060801, end: 20060801

REACTIONS (2)
  - INJECTION SITE RASH [None]
  - PRURITUS [None]
